FAERS Safety Report 7922545-X (Version None)
Quarter: 2011Q4

REPORT INFORMATION
  Report Type: 
  Country: None (occurrence: None)
  Receive Date: 20111117
  Receipt Date: 20101011
  Transmission Date: 20120403
  Serious: No
  Sender: FDA-Public Use
  Company Number: US-ALLERGAN-1013091US

PATIENT
  Age: 81 Year
  Sex: Male

DRUGS (3)
  1. SYSTANE [Concomitant]
     Dosage: 1 GTT, PRN
     Route: 047
     Dates: start: 20100901
  2. XALATAN [Concomitant]
     Indication: GLAUCOMA
     Dosage: 1 GTT, QHS
  3. COMBIGAN [Suspect]
     Indication: GLAUCOMA
     Dosage: 1 GTT, BID
     Route: 047

REACTIONS (1)
  - HAIR GROWTH ABNORMAL [None]
